FAERS Safety Report 11473377 (Version 1)
Quarter: 2015Q3

REPORT INFORMATION
  Report Type: Spontaneous
  Country: US (occurrence: None)
  Receive Date: 20150904
  Receipt Date: 20150904
  Transmission Date: 20151125
  Serious: Yes (Other)
  Sender: FDA-Public Use
  Company Number: 001969963A

PATIENT
  Age: 61 Year
  Sex: Female

DRUGS (4)
  1. PROACTIV PLUS COMPLEXION PERFECTING HYDRATOR [Suspect]
     Active Substance: SALICYLIC ACID
     Indication: ACNE
     Route: 061
     Dates: start: 20141210, end: 20141224
  2. PROACTIV PLUS PORE TARGETING TREATMENT [Suspect]
     Active Substance: BENZOYL PEROXIDE
     Indication: ACNE
     Route: 061
     Dates: start: 20141210, end: 20141224
  3. PROACTIV PLUS SKIN PURIFYING MASK [Suspect]
     Active Substance: SULFUR
     Indication: ACNE
     Route: 061
     Dates: start: 20141210, end: 20141224
  4. PROACTIVPLUS SKIN SMOOTHING EXFOLIATOR [Suspect]
     Active Substance: BENZOYL PEROXIDE
     Indication: ACNE
     Route: 061
     Dates: start: 20141210, end: 20141224

REACTIONS (2)
  - Rash erythematous [None]
  - Anaphylactic reaction [None]

NARRATIVE: CASE EVENT DATE: 20141224
